FAERS Safety Report 18858203 (Version 1)
Quarter: 2021Q1

REPORT INFORMATION
  Report Type: Spontaneous
  Country: DE (occurrence: DE)
  Receive Date: 20210208
  Receipt Date: 20210208
  Transmission Date: 20210420
  Serious: Yes (Hospitalization, Other)
  Sender: FDA-Public Use
  Company Number: DE-EMCURE PHARMACEUTICALS LTD-E2B_00004163

PATIENT
  Age: 73 Year
  Sex: Female
  Weight: 63 kg

DRUGS (11)
  1. METOPROLOL. [Concomitant]
     Active Substance: METOPROLOL
     Indication: HYPERTENSION
     Dosage: FREQUENCY ? IN 1 DAYS  47.5,MILLIGRAM
     Route: 048
     Dates: start: 20091007
  2. PREDNISOLONE. [Concomitant]
     Active Substance: PREDNISOLONE
     Indication: PREMEDICATION
     Dosage: 75,MILLIGRAM
     Route: 042
     Dates: start: 20150928
  3. ONDANSETRON [Suspect]
     Active Substance: ONDANSETRON
     Indication: PREMEDICATION
     Dosage: 4,MILLIGRAM TIME INTERVAL BETWEEN BEGINNING OF DRUG ADMINISTRATION
     Route: 042
     Dates: start: 20150929, end: 20160216
  4. CIPROFLOXACIN. [Concomitant]
     Active Substance: CIPROFLOXACIN
     Indication: PRODUCT USED FOR UNKNOWN INDICATION
     Dosage: 500,MILLIGRAM
     Route: 065
     Dates: start: 20151121
  5. DEXAMETHASONE. [Concomitant]
     Active Substance: DEXAMETHASONE
     Indication: PREMEDICATION
     Dosage: 4,MILLIGRAM
     Route: 048
     Dates: start: 20150929, end: 20160216
  6. MABTHERA [Suspect]
     Active Substance: RITUXIMAB
     Dosage: UNK UNK, UNKNOWN FREQ.
     Route: 042
     Dates: start: 20150928, end: 20150928
  7. BENDAMUSTINE HYDROCHLORIDE. [Suspect]
     Active Substance: BENDAMUSTINE HYDROCHLORIDE
     Indication: B-CELL LYMPHOMA
     Dosage: 135,MILLIGRAM
     Route: 042
     Dates: start: 20150929, end: 20160216
  8. PARACETAMOL [Suspect]
     Active Substance: ACETAMINOPHEN
     Indication: PREMEDICATION
     Dosage: 1,GRAM
     Route: 048
     Dates: start: 20150928
  9. TAVEGIL [Concomitant]
     Active Substance: CLEMASTINE FUMARATE
     Indication: PREMEDICATION
     Dosage: 2,MILLIGRAM
     Route: 042
     Dates: start: 20150928
  10. PARACETAMOL [Suspect]
     Active Substance: ACETAMINOPHEN
     Indication: B-CELL LYMPHOMA
  11. MABTHERA [Suspect]
     Active Substance: RITUXIMAB
     Indication: B-CELL LYMPHOMA
     Dosage: 1400,MILLIGRAM INTERVAL BETWEEN BEGINNING OF DRUG
     Route: 058

REACTIONS (5)
  - Cough [Recovered/Resolved]
  - Leukopenia [Not Recovered/Not Resolved]
  - Pneumonia [Recovered/Resolved]
  - Orthostatic intolerance [Recovered/Resolved]
  - Respiratory tract infection [Unknown]

NARRATIVE: CASE EVENT DATE: 20151030
